FAERS Safety Report 4717596-2 (Version None)
Quarter: 2005Q3

REPORT INFORMATION
  Report Type: 
  Country: None (occurrence: None)
  Receive Date: 20050712
  Receipt Date: 20050427
  Transmission Date: 20060218
  Serious: No
  Sender: FDA-Public Use
  Company Number: 2005S1000104

PATIENT
  Sex: Male

DRUGS (1)
  1. CUBICIN [Suspect]
     Dosage: 4 MG/KG;Q48H;IV
     Route: 042
     Dates: start: 20050401

REACTIONS (1)
  - HALLUCINATION [None]
